FAERS Safety Report 7155045-8 (Version None)
Quarter: 2010Q4

REPORT INFORMATION
  Report Type: 
  Country: None (occurrence: None)
  Receive Date: 20101214
  Receipt Date: 20091217
  Transmission Date: 20110411
  Serious: Yes (Hospitalization)
  Sender: FDA-Public Use
  Company Number: US-AMGEN-QUU373317

PATIENT

DRUGS (13)
  1. ENBREL [Suspect]
     Indication: PSORIATIC ARTHROPATHY
     Dosage: 50 MG, QWK
     Route: 058
     Dates: start: 20040205, end: 20080801
  2. LISINOPRIL AND HYDROCHLOROTHIAZIDE [Concomitant]
     Dosage: UNK UNK, UNK
  3. GEMFIBROZIL [Concomitant]
     Dosage: UNK UNK, UNK
  4. ATENOLOL/CHLORTALIDONE [Concomitant]
     Dosage: UNK UNK, UNK
  5. ROSUVASTATIN CALCIUM [Concomitant]
     Dosage: 10 MG, QD
  6. LANSOPRAZOLE [Concomitant]
     Dosage: 30 MG, QD
  7. AMITRIPTYLINE HYDROCHLORIDE [Concomitant]
     Dosage: UNK UNK, QD
  8. ISOSORBIDE MONONITRATE [Concomitant]
     Dosage: 30 MG, QD
  9. EZETIMIBE [Concomitant]
     Dosage: 10 MG, QD
  10. CALCIPOTRIENE [Concomitant]
     Dosage: UNK UNK, UNK
  11. KETOCONAZOLE [Concomitant]
     Dosage: UNK UNK, UNK
  12. UNSPECIFIED MEDICATION [Concomitant]
     Dosage: UNK UNK, UNK
  13. ALLOPURINOL [Concomitant]
     Dosage: UNK UNK, UNK

REACTIONS (3)
  - COLON CANCER [None]
  - OESOPHAGEAL CANDIDIASIS [None]
  - PROSTATE CANCER [None]
